FAERS Safety Report 9820361 (Version 1)
Quarter: 2013Q4

REPORT INFORMATION
  Report Type: Spontaneous
  Country: US (occurrence: None)
  Receive Date: 20131025
  Receipt Date: 20131025
  Transmission Date: 20140711
  Serious: Yes (Other)
  Sender: FDA-Public Use
  Company Number: 1850054

PATIENT
  Age: 65 Year
  Sex: Female

DRUGS (2)
  1. GEMCITABINE [Suspect]
     Indication: CHEMOTHERAPY
     Dosage: NOT REPORTED, NOT REPORTED, UNKNOWN
  2. INVESTIGATIONAL DRUG [Suspect]
     Indication: PROPHYLAXIS OF NAUSEA AND VOMITING
     Dosage: NOT REPORTED, NOT REPORTED, UNKNOWN

REACTIONS (1)
  - Pancytopenia [None]
